FAERS Safety Report 8939045 (Version 3)
Quarter: 2013Q1

REPORT INFORMATION
  Report Type: Spontaneous
  Country: US (occurrence: US)
  Receive Date: 20121203
  Receipt Date: 20130117
  Transmission Date: 20140127
  Serious: No
  Sender: FDA-Public Use
  Company Number: US-PFIZER INC-2012298221

PATIENT
  Age: 55 Year
  Sex: Female
  Weight: 61 kg

DRUGS (3)
  1. PREMARIN [Suspect]
     Indication: MENOPAUSAL SYMPTOMS
     Dosage: UNK
     Route: 067
     Dates: start: 201210, end: 201211
  2. PREMARIN [Suspect]
     Dosage: UNK
     Route: 067
  3. CRESTOR [Concomitant]
     Indication: BLOOD CHOLESTEROL INCREASED
     Dosage: UNK

REACTIONS (3)
  - Vulvovaginal burning sensation [Recovering/Resolving]
  - Vulvovaginal discomfort [Recovering/Resolving]
  - Vulvovaginal pruritus [Recovering/Resolving]
